FAERS Safety Report 6481031-7 (Version None)
Quarter: 2009Q4

REPORT INFORMATION
  Report Type: 
  Country: None (occurrence: None)
  Receive Date: 20091208
  Receipt Date: 20091125
  Transmission Date: 20100525
  Serious: Yes (Other)
  Sender: FDA-Public Use
  Company Number: NO-MILLENNIUM PHARMACEUTICALS, INC.-2009-04940

PATIENT

DRUGS (2)
  1. VELCADE [Suspect]
     Indication: MULTIPLE MYELOMA
     Dosage: UNK
     Route: 065
  2. DEXAMETHASONE TAB [Concomitant]

REACTIONS (1)
  - COLITIS [None]
